FAERS Safety Report 5581687-7 (Version None)
Quarter: 2008Q1

REPORT INFORMATION
  Report Type: 
  Country: None (occurrence: None)
  Receive Date: 20080104
  Receipt Date: 20071221
  Transmission Date: 20080703
  Serious: Yes (Other)
  Sender: FDA-Public Use
  Company Number: US-AMGEN-STX256161

PATIENT
  Sex: Female
  Weight: 80.4 kg

DRUGS (11)
  1. ENBREL [Suspect]
     Indication: RHEUMATOID ARTHRITIS
     Route: 058
     Dates: start: 19990401, end: 20060101
  2. PREDNISONE [Concomitant]
     Indication: RHEUMATOID ARTHRITIS
     Route: 065
  3. METHOTREXATE [Concomitant]
     Indication: RHEUMATOID ARTHRITIS
     Route: 048
     Dates: start: 19980320, end: 20051001
  4. FOSAMAX [Concomitant]
     Route: 065
  5. IRON [Concomitant]
  6. SYNTHROID [Concomitant]
  7. FOLIC ACID [Concomitant]
  8. CALCIUM WITH VITAMIN D [Concomitant]
  9. VITAMIN CAP [Concomitant]
  10. VICODIN [Concomitant]
  11. CLONAZEPAM [Concomitant]

REACTIONS (6)
  - DEEP VEIN THROMBOSIS [None]
  - FATIGUE [None]
  - PERIPHERAL T-CELL LYMPHOMA UNSPECIFIED [None]
  - PYREXIA [None]
  - SPINAL FUSION SURGERY [None]
  - WEIGHT DECREASED [None]
